APPROVED DRUG PRODUCT: VANCOMYCIN HYDROCHLORIDE
Active Ingredient: VANCOMYCIN HYDROCHLORIDE
Strength: EQ 5GM BASE/VIAL
Dosage Form/Route: INJECTABLE;INJECTION
Application: A204125 | Product #001 | TE Code: AP
Applicant: XELLIA PHARMACEUTICALS APS
Approved: Dec 28, 2015 | RLD: No | RS: No | Type: RX